FAERS Safety Report 4503733-1 (Version None)
Quarter: 2004Q4

REPORT INFORMATION
  Report Type: 
  Country: None (occurrence: None)
  Receive Date: 20041115
  Receipt Date: 20041102
  Transmission Date: 20050328
  Serious: Yes (Hospitalization)
  Sender: FDA-Public Use
  Company Number: A02200403241

PATIENT
  Age: 76 Year
  Sex: Male

DRUGS (8)
  1. EXACYL       (TRANEXAMIC ACID) [Suspect]
     Dosage: 1 UNIT TID
     Route: 048
     Dates: end: 20041005
  2. ZOLPIDEM - (ZOLPIDEM) - UNKNOWN - UNIT DOSE : UNKNOWN [Suspect]
     Dosage: 1UNIT OD
     Route: 048
     Dates: end: 20041005
  3. DI-ANTALVIC - (PARACETAMOL/ DEXTROPROPOXYPHENE) - CAPSULE - 1 UNIT [Suspect]
     Dosage: 2 UNIT QID
     Route: 048
     Dates: end: 20041005
  4. FERO GRAD LP VITAMINE C 500 - (FERROUS SULFATE/ASCORBIC ACID) - TABLET [Suspect]
     Route: 048
     Dates: end: 20041005
  5. SERESTA - (OXAZEPAM) - TABLET - UNIT DOSE : UNKNOWN [Suspect]
     Dosage: 1 UNIT OD
     Route: 048
     Dates: start: 20040701, end: 20041005
  6. TARKA [Suspect]
     Dosage: 1 UNIT OD
     Route: 048
     Dates: end: 20041005
  7. LANTUS [Concomitant]
  8. NOVORAPID (INSULIN ASPART) [Concomitant]

REACTIONS (5)
  - DISSEMINATED INTRAVASCULAR COAGULATION [None]
  - EOSINOPHILIA [None]
  - INJECTION SITE HAEMORRHAGE [None]
  - SPINAL MYELOGRAM ABNORMAL [None]
  - THROMBOCYTOPENIA [None]
